FAERS Safety Report 8766171 (Version 1)
Quarter: 2012Q4

REPORT INFORMATION
  Report Type: 
  Country: GB (occurrence: GB)
  Receive Date: 20120904
  Receipt Date: 20120904
  Transmission Date: 20130627
  Serious: Yes (Other)
  Sender: FDA-Public Use
  Company Number: GB-WATSON-2012-15352

PATIENT
  Age: 32 Year
  Sex: Female

DRUGS (9)
  1. OMEPRAZOLE (UNKNOWN) [Suspect]
     Indication: DYSPEPSIA
     Dosage: 20 mg, daily
     Route: 048
     Dates: start: 20080919
  2. FLUOXETINE HYDROCHLORIDE [Suspect]
     Indication: DEPRESSION
     Dosage: 60 mg, daily
     Route: 048
     Dates: start: 20100621, end: 20111004
  3. PROPRANOLOL [Suspect]
     Indication: ANXIETY
     Dosage: 10 mg, bid
     Route: 048
     Dates: start: 20090505
  4. PROPRANOLOL [Suspect]
     Indication: PALPITATIONS
  5. CITALOPRAM HYDROBROMIDE (UNKNOWN) [Suspect]
     Indication: DEPRESSION
     Dosage: 20 mg, daily
     Route: 048
     Dates: start: 20111004
  6. DIHYDROCODEINE [Suspect]
     Indication: PAIN
     Dosage: 30 mg, bid
     Route: 048
     Dates: start: 20100315
  7. SEROQUEL XR [Suspect]
     Indication: ANXIETY
     Dosage: 200 mg, bid
     Route: 048
     Dates: start: 20110323, end: 20110910
  8. SEROQUEL XR [Suspect]
     Indication: DEPRESSION
  9. CHLORPROMAZINE [Suspect]
     Indication: ANXIETY
     Dosage: 25 mg, daily
     Route: 048
     Dates: start: 20110922

REACTIONS (6)
  - Exposure during pregnancy [Unknown]
  - Pre-eclampsia [Unknown]
  - Pregnancy [None]
  - Abortion spontaneous [None]
  - Maternal exposure during pregnancy [None]
  - Premature delivery [None]
